FAERS Safety Report 8117765-8 (Version None)
Quarter: 2011Q4

REPORT INFORMATION
  Report Type: 
  Country: None (occurrence: None)
  Receive Date: 20111227
  Receipt Date: 20111104
  Transmission Date: 20120403
  Serious: No
  Sender: FDA-Public Use
  Company Number: PHEH2011US07581

PATIENT
  Age: 50 Year
  Sex: Female

DRUGS (6)
  1. VITAMIN D [Concomitant]
  2. SERZONE [Concomitant]
  3. GILENYA [Suspect]
     Indication: MULTIPLE SCLEROSIS
     Dosage: 0.5 MG, QD
     Dates: start: 20111013
  4. DITROPAN [Concomitant]
  5. VITAMIN B NOS (VITAMIN B NOS) [Concomitant]
  6. BUPROPION HCL [Concomitant]

REACTIONS (3)
  - HEART RATE DECREASED [None]
  - CONCOMITANT DISEASE PROGRESSION [None]
  - MEMORY IMPAIRMENT [None]
